FAERS Safety Report 10172391 (Version 1)
Quarter: 2014Q2

REPORT INFORMATION
  Report Type: Spontaneous
  Country: US (occurrence: US)
  Receive Date: 20140515
  Receipt Date: 20140515
  Transmission Date: 20141212
  Serious: Yes (Other)
  Sender: FDA-Public Use
  Company Number: US-ASTRAZENECA-2014SE30846

PATIENT
  Age: 47 Year
  Sex: Female
  Weight: 61.2 kg

DRUGS (2)
  1. PRILOSEC OTC [Suspect]
     Indication: GASTROOESOPHAGEAL REFLUX DISEASE
     Route: 048
  2. SYNTHROID [Suspect]
     Indication: HYPOTHYROIDISM
     Route: 048
     Dates: start: 1987

REACTIONS (4)
  - Blood gastrin increased [Recovered/Resolved]
  - Irritability [Recovered/Resolved]
  - Drug ineffective [Recovered/Resolved]
  - Gastrooesophageal reflux disease [Recovered/Resolved]
